FAERS Safety Report 10528420 (Version 1)
Quarter: 2014Q4

REPORT INFORMATION
  Report Type: Spontaneous
  Country: US (occurrence: None)
  Receive Date: 20141017
  Receipt Date: 20141017
  Transmission Date: 20150528
  Serious: Yes (Disabling)
  Sender: FDA-Public Use
  Company Number: None

PATIENT
  Age: 40 Year
  Sex: Female
  Weight: 79.38 kg

DRUGS (1)
  1. CIPROFLOXACIN. [Suspect]
     Active Substance: CIPROFLOXACIN
     Indication: URINARY TRACT INFECTION
     Dosage: 1 PILL ?ONCE DAILY ?TAKEN BY MOUTH
     Route: 048

REACTIONS (9)
  - Depression [None]
  - Fatigue [None]
  - Malaise [None]
  - Asthenia [None]
  - Panic attack [None]
  - Sleep terror [None]
  - Anxiety [None]
  - Crying [None]
  - Adrenal disorder [None]

NARRATIVE: CASE EVENT DATE: 20120104
